FAERS Safety Report 19399521 (Version 2)
Quarter: 2021Q2

REPORT INFORMATION
  Report Type: Report from Study
  Country: JP (occurrence: JP)
  Receive Date: 20210610
  Receipt Date: 20210618
  Transmission Date: 20210717
  Serious: Yes (Other)
  Sender: FDA-Public Use
  Company Number: JP-TEVA-2021-JP-1922104

PATIENT
  Age: 81 Year
  Sex: Male

DRUGS (12)
  1. MIRAPEX [Concomitant]
     Active Substance: PRAMIPEXOLE DIHYDROCHLORIDE
     Route: 065
     Dates: end: 20191225
  2. THYRADIN S [Concomitant]
     Active Substance: LEVOTHYROXINE SODIUM
  3. LIPIDIL [Concomitant]
     Active Substance: FENOFIBRATE
  4. RASAGILINE MESYLATE. [Suspect]
     Active Substance: RASAGILINE MESYLATE
     Indication: PARKINSON^S DISEASE
     Dosage: 1 MILLIGRAM DAILY;
     Route: 065
     Dates: start: 20190529, end: 20190805
  5. DOPS [Concomitant]
     Active Substance: DROXIDOPA
     Route: 065
     Dates: end: 20191225
  6. MAGNESIUM OXIDE. [Concomitant]
     Active Substance: MAGNESIUM OXIDE
  7. ARICEPT [Concomitant]
     Active Substance: DONEPEZIL HYDROCHLORIDE
  8. SYMMETREL [Concomitant]
     Active Substance: AMANTADINE HYDROCHLORIDE
     Route: 065
     Dates: end: 20191225
  9. LEVODOPA [Concomitant]
     Active Substance: LEVODOPA
     Route: 065
     Dates: end: 20191225
  10. NOURIAST [Concomitant]
     Active Substance: ISTRADEFYLLINE
     Route: 065
     Dates: end: 20191225
  11. COMTAN [Concomitant]
     Active Substance: ENTACAPONE
     Route: 065
     Dates: end: 20191225
  12. PLAVIX [Concomitant]
     Active Substance: CLOPIDOGREL BISULFATE

REACTIONS (1)
  - Renal impairment [Recovering/Resolving]

NARRATIVE: CASE EVENT DATE: 20190805
